FAERS Safety Report 17743389 (Version 3)
Quarter: 2020Q2

REPORT INFORMATION
  Report Type: Report from Study
  Country: US (occurrence: US)
  Receive Date: 20200504
  Receipt Date: 20200518
  Transmission Date: 20200714
  Serious: Yes (Hospitalization)
  Sender: FDA-Public Use
  Company Number: US-PFIZER INC-2020176700

PATIENT
  Age: 5 Year
  Sex: Male
  Weight: 18.9 kg

DRUGS (9)
  1. TOPOTECAN HYDROCHLORIDE. [Suspect]
     Active Substance: TOPOTECAN HYDROCHLORIDE
     Dosage: 0.433 MG, DAYS 1-5
     Route: 042
     Dates: start: 20200211, end: 20200320
  2. CYCLOPHOSPHAMIDE. [Suspect]
     Active Substance: CYCLOPHOSPHAMIDE
     Dosage: 144 MG, DAYS 1-5
     Route: 042
     Dates: start: 20200211, end: 20200320
  3. SENNA [SENNOSIDE A+B] [Concomitant]
     Active Substance: SENNOSIDES A AND B
     Indication: CONSTIPATION
     Dosage: 8.8 MG/ 5 ML, AS NEEDED
     Route: 048
     Dates: start: 20200211
  4. CHOLECALCIFEROL [Concomitant]
     Active Substance: CHOLECALCIFEROL
     Indication: VITAMIN SUPPLEMENTATION
     Dosage: 1 ML, ONCE DAILY
     Route: 048
  5. METHADONE [Concomitant]
     Active Substance: METHADONE HYDROCHLORIDE
     Indication: PAIN
     Dosage: 1.5 MG, TWICE DAILY
     Route: 048
     Dates: start: 20200206
  6. OXYCODONE [Concomitant]
     Active Substance: OXYCODONE
     Indication: PAIN
     Dosage: 1.8 MG, Q 4HOURS
     Route: 048
     Dates: start: 20200309
  7. LORLATINIB [Suspect]
     Active Substance: LORLATINIB
     Indication: NEUROBLASTOMA
     Dosage: 70 MG, ONCE DAILY
     Route: 048
     Dates: start: 20200211
  8. ONDANSETRON [Concomitant]
     Active Substance: ONDANSETRON
     Indication: NAUSEA
     Dosage: 2.5 ML, AS NEEDED
     Route: 048
     Dates: start: 20200211
  9. CALCIUM CARBONATE. [Concomitant]
     Active Substance: CALCIUM CARBONATE
     Indication: ABDOMINAL DISCOMFORT
     Dosage: 1250 MG/ 5ML/ G-TUBE
     Dates: start: 20200211

REACTIONS (1)
  - Skin infection [Recovered/Resolved]

NARRATIVE: CASE EVENT DATE: 20200416
